FAERS Safety Report 5473960-8 (Version None)
Quarter: 2007Q3

REPORT INFORMATION
  Report Type: 
  Country: None (occurrence: None)
  Receive Date: 20070831
  Receipt Date: 20070606
  Transmission Date: 20080115
  Serious: No
  Sender: FDA-Public Use
  Company Number: 232089

PATIENT
  Age: 70 Year
  Sex: Female

DRUGS (11)
  1. LUCENTIS [Suspect]
     Indication: MACULAR DEGENERATION
     Dosage: 0.5 MG, INTRAVITREAL; 0.5 MG, INTRAVITREAL
     Dates: start: 20060823, end: 20060823
  2. LUCENTIS [Suspect]
     Indication: MACULAR DEGENERATION
     Dosage: 0.5 MG, INTRAVITREAL; 0.5 MG, INTRAVITREAL
     Dates: start: 20060719
  3. LIPITOR [Concomitant]
  4. KLOR-CON [Concomitant]
  5. LOTENSIN [Concomitant]
  6. TOPROL-XL [Concomitant]
  7. MODURETIC 5/50 (AMILORIDE HYDROCHLORIDE, HYDROCHLOROTHIAZIDE) [Concomitant]
  8. ASPIRIN [Concomitant]
  9. GATIFLOXACIN [Concomitant]
  10. BETADINE [Concomitant]
  11. PROPARACAINE (PROPARACAINE HYDROCHLORIDE) [Concomitant]

REACTIONS (2)
  - EYE SWELLING [None]
  - RASH [None]
